FAERS Safety Report 4382811-4 (Version None)
Quarter: 2004Q2

REPORT INFORMATION
  Report Type: 
  Country: None (occurrence: None)
  Receive Date: 20040617
  Receipt Date: 20040611
  Transmission Date: 20050107
  Serious: Yes (Hospitalization)
  Sender: FDA-Public Use
  Company Number: 04-00280

PATIENT
  Sex: Male
  Weight: 10.4327 kg

DRUGS (3)
  1. FEVERALL [Suspect]
     Indication: PAIN
     Dosage: 120 MG, ONCE, RECTAL
     Route: 054
     Dates: start: 20040604, end: 20040604
  2. FEVERALL [Suspect]
  3. FLINTSTONE MULTI-VITAMIN [Concomitant]

REACTIONS (1)
  - CONVULSION [None]
